FAERS Safety Report 5982504-3 (Version None)
Quarter: 2008Q4

REPORT INFORMATION
  Report Type: 
  Country: None (occurrence: None)
  Receive Date: 20081208
  Receipt Date: 20081203
  Transmission Date: 20090506
  Serious: Yes (Hospitalization)
  Sender: FDA-Public Use
  Company Number: AU-BRISTOL-MYERS SQUIBB COMPANY-14429179

PATIENT
  Age: 18 Year
  Sex: Female

DRUGS (1)
  1. ARIPIPRAZOLE [Suspect]

REACTIONS (1)
  - ABNORMAL BEHAVIOUR [None]
